FAERS Safety Report 17960342 (Version 1)
Quarter: 2020Q2

REPORT INFORMATION
  Report Type: Spontaneous
  Country: US (occurrence: US)
  Receive Date: 20200628
  Receipt Date: 20200628
  Transmission Date: 20200714
  Serious: Yes (Other)
  Sender: FDA-Public Use
  Company Number: None

PATIENT
  Age: 51 Year
  Sex: Female

DRUGS (1)
  1. OTEZLA [Suspect]
     Active Substance: APREMILAST
     Indication: PSORIASIS
     Route: 048
     Dates: start: 20200401

REACTIONS (4)
  - Upper respiratory tract infection [None]
  - Therapeutic product effect incomplete [None]
  - Suspected COVID-19 [None]
  - Skin disorder [None]

NARRATIVE: CASE EVENT DATE: 20200626
